FAERS Safety Report 18109607 (Version 1)
Quarter: 2020Q3

REPORT INFORMATION
  Report Type: Spontaneous
  Country: DE (occurrence: CN)
  Receive Date: 20200804
  Receipt Date: 20200804
  Transmission Date: 20201103
  Serious: Yes (Other)
  Sender: FDA-Public Use
  Company Number: CN-ELI_LILLY_AND_COMPANY-CN202007011771

PATIENT
  Age: 65 Year
  Sex: Male
  Weight: 45 kg

DRUGS (5)
  1. ERBITUX [Suspect]
     Active Substance: CETUXIMAB
     Dosage: 790 MG, UNKNOWN
     Route: 042
     Dates: start: 20200702
  2. FLUOROURACIL. [Concomitant]
     Active Substance: FLUOROURACIL
     Dosage: 3.8 G, UNKNOWN (0.9% NS (NORMAL SALINE) 230ML IV?VP FOR INJECTION)
     Route: 042
     Dates: start: 20200619
  3. ERBITUX [Suspect]
     Active Substance: CETUXIMAB
     Indication: RECTAL CANCER
     Dosage: 790 MG, UNKNOWN
     Route: 042
     Dates: start: 20200618
  4. FLUOROURACIL. [Concomitant]
     Active Substance: FLUOROURACIL
     Indication: RECTAL CANCER
     Dosage: 0.6 G, UNKNOWN (IN 0.9% NS (NORMAL SALINE) 30ML IVGTT FOR INJECTION)
     Route: 040
     Dates: start: 20200618
  5. OXALIPLATIN. [Concomitant]
     Active Substance: OXALIPLATIN
     Indication: RECTAL CANCER
     Dosage: 134 MG, UNKNOWN (WITH 5% GS (GLUCOSE SALINE) 500ML IVGTT FOR INJECTION)
     Route: 042
     Dates: start: 20200618

REACTIONS (2)
  - White blood cell count decreased [Recovering/Resolving]
  - Neutropenia [Recovering/Resolving]

NARRATIVE: CASE EVENT DATE: 20200701
